FAERS Safety Report 8592516-1 (Version None)
Quarter: 2012Q3

REPORT INFORMATION
  Report Type: 
  Country: None (occurrence: None)
  Receive Date: 20120814
  Receipt Date: 20120807
  Transmission Date: 20120928
  Serious: Yes (Other)
  Sender: FDA-Public Use
  Company Number: PHHY2012MX069731

PATIENT
  Age: 85 Year
  Sex: Male

DRUGS (1)
  1. EXELON [Suspect]
     Indication: DEMENTIA ALZHEIMER'S TYPE
     Dosage: 1 PATCH (10CM2/9.5MG) DAILY
     Route: 062
     Dates: start: 20100101

REACTIONS (1)
  - HEPATIC NEOPLASM MALIGNANT [None]
